FAERS Safety Report 21700255 (Version 11)
Quarter: 2023Q4

REPORT INFORMATION
  Report Type: Spontaneous
  Country: US (occurrence: US)
  Receive Date: 20221208
  Receipt Date: 20231115
  Transmission Date: 20240110
  Serious: No
  Sender: FDA-Public Use
  Company Number: US-SA-SAC20221207001253

PATIENT
  Age: 36 Year
  Sex: Male

DRUGS (18)
  1. ALPROLIX [Suspect]
     Active Substance: EFTRENONACOG ALFA
     Indication: Factor IX deficiency
     Dosage: 4500-5000 U, Q5D
     Route: 042
     Dates: start: 201207
  2. ALPROLIX [Suspect]
     Active Substance: EFTRENONACOG ALFA
     Indication: Factor IX deficiency
     Dosage: 4500-5000 U, Q5D
     Route: 042
     Dates: start: 201207
  3. ALPROLIX [Suspect]
     Active Substance: EFTRENONACOG ALFA
     Dosage: 4000 U, EVERY WEEK AND PRN
     Route: 042
  4. ALPROLIX [Suspect]
     Active Substance: EFTRENONACOG ALFA
     Dosage: 4000 U, EVERY WEEK AND PRN
     Route: 042
  5. ALPROLIX [Suspect]
     Active Substance: EFTRENONACOG ALFA
     Dosage: 4500-5000UNITS, Q5D
     Route: 042
     Dates: start: 20221012
  6. ALPROLIX [Suspect]
     Active Substance: EFTRENONACOG ALFA
     Dosage: 4500-5000UNITS, Q5D
     Route: 042
     Dates: start: 20221012
  7. ALPROLIX [Suspect]
     Active Substance: EFTRENONACOG ALFA
     Dosage: 4500-5000UNITS, Q5D
     Route: 042
     Dates: start: 202210
  8. ALPROLIX [Suspect]
     Active Substance: EFTRENONACOG ALFA
     Dosage: 4500-5000UNITS, Q5D
     Route: 042
     Dates: start: 202210
  9. ALPROLIX [Suspect]
     Active Substance: EFTRENONACOG ALFA
     Dosage: 4500 - 5000 UNITS SLOW IV PUSH EVERY 5 DAYS
     Route: 042
     Dates: start: 202211
  10. ALPROLIX [Suspect]
     Active Substance: EFTRENONACOG ALFA
     Dosage: 4500 - 5000 UNITS SLOW IV PUSH EVERY 5 DAYS
     Route: 042
     Dates: start: 202211
  11. ALPROLIX [Suspect]
     Active Substance: EFTRENONACOG ALFA
     Dosage: 9000 U (MAJOR BLEED INFUSE 9000 UNITS (8100-9900) SLOW IV PUSH FOLLOWED BY 4500 UNITS (4050-4950) QD
     Route: 042
  12. ALPROLIX [Suspect]
     Active Substance: EFTRENONACOG ALFA
     Dosage: 9000 U (MAJOR BLEED INFUSE 9000 UNITS (8100-9900) SLOW IV PUSH FOLLOWED BY 4500 UNITS (4050-4950) QD
     Route: 042
  13. ALPROLIX [Suspect]
     Active Substance: EFTRENONACOG ALFA
     Dosage: 4500 U (MINOR BLEED INFUSE 4500 UNITS SLOW IV PUSH EVERY 24 HOURS) QD
     Route: 041
  14. ALPROLIX [Suspect]
     Active Substance: EFTRENONACOG ALFA
     Dosage: 4500 U (MINOR BLEED INFUSE 4500 UNITS SLOW IV PUSH EVERY 24 HOURS) QD
     Route: 041
  15. ALPROLIX [Suspect]
     Active Substance: EFTRENONACOG ALFA
     Dosage: 4500-5000 UNITS, Q5D
     Route: 042
  16. ALPROLIX [Suspect]
     Active Substance: EFTRENONACOG ALFA
     Dosage: 4500-5000 UNITS, Q5D
     Route: 042
  17. TRANEXAMIC ACID [Concomitant]
     Active Substance: TRANEXAMIC ACID
  18. DIPHENHYDRAMINE [Concomitant]
     Active Substance: DIPHENHYDRAMINE
     Indication: Hypersensitivity
     Dosage: UNK

REACTIONS (4)
  - Haemorrhage [Recovered/Resolved]
  - Haemorrhage [Recovered/Resolved]
  - Haemorrhage [Unknown]
  - Haemorrhage [Recovered/Resolved]

NARRATIVE: CASE EVENT DATE: 20221101
